FAERS Safety Report 13734112 (Version 2)
Quarter: 2017Q4

REPORT INFORMATION
  Report Type: Spontaneous
  Country: US (occurrence: US)
  Receive Date: 20170708
  Receipt Date: 20171026
  Transmission Date: 20180320
  Serious: Yes (Hospitalization, Other)
  Sender: FDA-Public Use
  Company Number: US-TORRENT-00001343

PATIENT
  Age: 16 Year
  Sex: Male

DRUGS (2)
  1. QUETIAPINE. [Suspect]
     Active Substance: QUETIAPINE
  2. ALPRAZOLAM. [Suspect]
     Active Substance: ALPRAZOLAM

REACTIONS (6)
  - Unresponsive to stimuli [Unknown]
  - Palpitations [Unknown]
  - Substance abuse [Unknown]
  - Somnolence [Recovering/Resolving]
  - Sedation [Unknown]
  - Drug dependence [Unknown]
